FAERS Safety Report 7315959-2 (Version None)
Quarter: 2011Q1

REPORT INFORMATION
  Report Type: 
  Country: None (occurrence: None)
  Receive Date: 20110225
  Receipt Date: 20110221
  Transmission Date: 20110831
  Serious: Yes (Hospitalization, Other)
  Sender: FDA-Public Use
  Company Number: US-ABBOTT-11P-163-0706720-00

PATIENT
  Age: 67 Year
  Sex: Female
  Weight: 45.4 kg

DRUGS (14)
  1. RESTORIL [Concomitant]
     Indication: SLEEP DISORDER
  2. VASOTEC [Concomitant]
     Indication: PRODUCT USED FOR UNKNOWN INDICATION
  3. IMDUR [Concomitant]
     Indication: ANGINA PECTORIS
  4. IMDUR [Concomitant]
     Indication: HEART VALVE INCOMPETENCE
  5. NOVOLOG [Concomitant]
     Indication: DIABETES MELLITUS
  6. NORCO [Concomitant]
     Indication: PAIN
     Dosage: 10/325MG
  7. SYNTHROID [Suspect]
     Indication: HYPOTHYROIDISM
  8. VITAMIN B-12 [Concomitant]
     Indication: PRODUCT USED FOR UNKNOWN INDICATION
  9. XANAX [Concomitant]
     Indication: ANXIETY
  10. ZANAFLEX [Concomitant]
     Indication: PRODUCT USED FOR UNKNOWN INDICATION
  11. ANTIVERT [Concomitant]
     Indication: DIZZINESS
  12. CELEBREX [Suspect]
     Indication: OSTEOARTHRITIS
     Dates: end: 20101101
  13. CELEBREX [Suspect]
     Indication: RHEUMATOID ARTHRITIS
  14. ELAVIL [Concomitant]
     Indication: PRODUCT USED FOR UNKNOWN INDICATION

REACTIONS (10)
  - MUSCULOSKELETAL STIFFNESS [None]
  - PANCREATIC INSUFFICIENCY [None]
  - HYPERTHYROIDISM [None]
  - PNEUMONIA [None]
  - BODY HEIGHT DECREASED [None]
  - WEIGHT DECREASED [None]
  - FALL [None]
  - GAIT DISTURBANCE [None]
  - NEUROPATHY PERIPHERAL [None]
  - FRACTURE [None]
